FAERS Safety Report 16660957 (Version 1)
Quarter: 2019Q3

REPORT INFORMATION
  Report Type: Report from Study
  Country: US (occurrence: US)
  Receive Date: 20190802
  Receipt Date: 20190802
  Transmission Date: 20191004
  Serious: Yes (Other)
  Sender: FDA-Public Use
  Company Number: US-ROCHE-2369350

PATIENT
  Sex: Female
  Weight: 47.67 kg

DRUGS (7)
  1. OCREVUS [Suspect]
     Active Substance: OCRELIZUMAB
     Indication: PROGRESSIVE MULTIPLE SCLEROSIS
     Dosage: ONGOING YES
     Route: 042
     Dates: start: 2018
  2. LISINOPRIL. [Concomitant]
     Active Substance: LISINOPRIL
     Indication: HYPERTENSION
     Dosage: ONGOING YES
     Route: 048
  3. BENADRYL [Concomitant]
     Active Substance: DIPHENHYDRAMINE HYDROCHLORIDE
  4. FLUOXETINE [Concomitant]
     Active Substance: FLUOXETINE HYDROCHLORIDE
     Dosage: ONGOING YES
     Route: 048
     Dates: start: 2007
  5. CLONAZEPAM. [Suspect]
     Active Substance: CLONAZEPAM
     Indication: MUSCLE SPASMS
     Dosage: ONGOING YES
     Route: 048
     Dates: start: 2007
  6. NORCO [Concomitant]
     Active Substance: ACETAMINOPHEN\HYDROCODONE BITARTRATE
     Indication: PAIN
     Dosage: ONGOING YES
     Route: 048
  7. BACLOFEN. [Concomitant]
     Active Substance: BACLOFEN
     Indication: MUSCLE SPASTICITY
     Dosage: MEDICINE GOES INSIDE MY SPINE ; ONGOING YES
     Route: 065
     Dates: start: 2014

REACTIONS (14)
  - Fatigue [Recovered/Resolved]
  - Off label use [Unknown]
  - Finger deformity [Unknown]
  - Urinary retention [Not Recovered/Not Resolved]
  - Memory impairment [Recovering/Resolving]
  - Urinary tract infection [Recovered/Resolved]
  - Joint stiffness [Unknown]
  - Alopecia [Recovering/Resolving]
  - Muscle spasticity [Unknown]
  - Muscular weakness [Recovering/Resolving]
  - Disability [Not Recovered/Not Resolved]
  - Intentional product use issue [Unknown]
  - Fall [Unknown]
  - Muscle contracture [Unknown]

NARRATIVE: CASE EVENT DATE: 2007
